FAERS Safety Report 12199986 (Version 1)
Quarter: 2016Q1

REPORT INFORMATION
  Report Type: Spontaneous
  Country: US (occurrence: US)
  Receive Date: 20160322
  Receipt Date: 20160322
  Transmission Date: 20160526
  Serious: No
  Sender: FDA-Public Use
  Company Number: US-SEPTODONT-201502819

PATIENT
  Age: 54 Year
  Sex: Female

DRUGS (7)
  1. AMINO ACIDS [Concomitant]
     Active Substance: AMINO ACIDS
     Dosage: NO DOSE INFORMATION PROVIDED
  2. RED YEAST RICE [Concomitant]
     Active Substance: DIETARY SUPPLEMENT
     Dosage: NO DOSE INFORMATION PROVIDED
  3. LIDOCAINE HYDROCHLORIDE 2% WITH EPINEPHRINE 1:100,000 INJECTION [Suspect]
     Active Substance: EPINEPHRINE\LIDOCAINE HYDROCHLORIDE
     Indication: LOCAL ANAESTHESIA
     Dosage: 2 CARPULES
     Route: 004
     Dates: start: 20150324
  4. BENZOCAINE 20% [Concomitant]
     Indication: LOCAL ANAESTHESIA
     Dosage: NO DOSE INFORMATION PROVIDED.
     Route: 061
     Dates: start: 20150324
  5. LIDOCAINE HYDROCHLORIDE 2% WITH EPINEPHRINE 1:100,000 INJECTION [Suspect]
     Active Substance: EPINEPHRINE\LIDOCAINE HYDROCHLORIDE
     Indication: LOCAL ANAESTHESIA
     Dosage: 2 CARPULES
     Route: 004
     Dates: start: 20150324
  6. ANTIOXIDANTS [Concomitant]
     Dosage: NO DOSE INFORMATION PROVIDED
  7. ESSENTIAL SOLUTION COENZYME Q10 MASK SHEET .14; 5.6 G/28G; G/28G CREAM [Concomitant]
     Dosage: NO DOSE INFORMATION PROVIDED

REACTIONS (4)
  - Injection site swelling [Recovered/Resolved]
  - Application site erythema [Recovered/Resolved]
  - Injection site exfoliation [Recovered/Resolved]
  - Injection site ulcer [Recovered/Resolved]

NARRATIVE: CASE EVENT DATE: 20150324
